FAERS Safety Report 8399070-8 (Version None)
Quarter: 2012Q2

REPORT INFORMATION
  Report Type: 
  Country: None (occurrence: None)
  Receive Date: 20120531
  Receipt Date: 20120503
  Transmission Date: 20120825
  Serious: No
  Sender: FDA-Public Use
  Company Number: US-BAYER-2012-048532

PATIENT
  Sex: Male

DRUGS (1)
  1. ALEVE (CAPLET) [Suspect]
     Dosage: UNK, PRN
     Route: 048

REACTIONS (3)
  - BLOOD PRESSURE INCREASED [None]
  - ABDOMINAL DISTENSION [None]
  - FLATULENCE [None]
